FAERS Safety Report 8128765-6 (Version None)
Quarter: 2012Q1

REPORT INFORMATION
  Report Type: 
  Country: None (occurrence: None)
  Receive Date: 20120210
  Receipt Date: 20120126
  Transmission Date: 20120608
  Serious: Yes (Death, Other)
  Sender: FDA-Public Use
  Company Number: US-WATSON-2012-02018

PATIENT
  Age: 65 Year
  Sex: Male

DRUGS (5)
  1. MYCOPHENOLATE MEFETIL [Suspect]
     Indication: RENAL TRANSPLANT
  2. TACROLIMUS [Suspect]
     Dosage: 4 MG BID
  3. TACROLIMUS [Suspect]
     Dosage: 2 MG BID
  4. TACROLIMUS [Suspect]
     Indication: RENAL TRANSPLANT
     Dosage: 0.5 MG BID
  5. PREDNISONE TAB [Suspect]
     Indication: RENAL TRANSPLANT
     Dosage: 10 MG DAILY

REACTIONS (2)
  - CRYPTOCOCCOSIS [None]
  - IMMUNE RECONSTITUTION SYNDROME [None]
